FAERS Safety Report 11672613 (Version 1)
Quarter: 2015Q4

REPORT INFORMATION
  Report Type: Report from Study
  Country: GB (occurrence: GB)
  Receive Date: 20151028
  Receipt Date: 20151028
  Transmission Date: 20160304
  Serious: Yes (Hospitalization, Other)
  Sender: FDA-Public Use
  Company Number: GB-ABBVIE-13P-167-1141883-00

PATIENT
  Age: 65 Year
  Sex: Male
  Weight: 84 kg

DRUGS (2)
  1. METHOTREXATE [Concomitant]
     Active Substance: METHOTREXATE
     Indication: RHEUMATOID ARTHRITIS
  2. HUMIRA [Suspect]
     Active Substance: ADALIMUMAB
     Indication: RHEUMATOID ARTHRITIS
     Route: 058
     Dates: start: 20070315, end: 20130507

REACTIONS (6)
  - Respiratory tract infection [Unknown]
  - Latent tuberculosis [Unknown]
  - Pulmonary calcification [Unknown]
  - Lower respiratory tract infection [Unknown]
  - Pulmonary calcification [Unknown]
  - Pleural fibrosis [Unknown]

NARRATIVE: CASE EVENT DATE: 20130511
